FAERS Safety Report 8472195-4 (Version None)
Quarter: 2012Q2

REPORT INFORMATION
  Report Type: 
  Country: None (occurrence: None)
  Receive Date: 20120627
  Receipt Date: 20120619
  Transmission Date: 20120825
  Serious: Yes (Hospitalization)
  Sender: FDA-Public Use
  Company Number: US-MERCK-1203USA00545

PATIENT
  Age: 62 Year
  Sex: Female
  Weight: 60 kg

DRUGS (12)
  1. FOSAMAX [Suspect]
     Route: 048
     Dates: start: 20080101, end: 20100101
  2. VITAMINS (UNSPECIFIED) [Concomitant]
     Route: 065
     Dates: start: 19900101
  3. CALCIUM (UNSPECIFIED) [Concomitant]
     Indication: OSTEOPENIA
     Route: 065
     Dates: start: 19900101
  4. FOSAMAX [Suspect]
     Indication: OSTEOPENIA
     Route: 048
     Dates: start: 19960101, end: 20030301
  5. HORMONES (UNSPECIFIED) [Concomitant]
     Route: 065
     Dates: start: 19850101, end: 19990101
  6. FOSAMAX [Suspect]
     Route: 048
     Dates: start: 20030301, end: 20080301
  7. FOSAMAX [Suspect]
     Route: 048
     Dates: start: 20080101, end: 20100101
  8. CHOLECALCIFEROL [Concomitant]
     Indication: OSTEOPENIA
     Route: 065
     Dates: start: 19960101
  9. FOSAMAX [Suspect]
     Indication: OSTEOPOROSIS
     Route: 048
     Dates: start: 19960101, end: 20030301
  10. ASCORBIC ACID [Concomitant]
     Route: 065
     Dates: start: 19900101
  11. SYNTHROID [Concomitant]
     Indication: HYPOTHYROIDISM
     Route: 065
     Dates: start: 19680101
  12. FOSAMAX [Suspect]
     Route: 048
     Dates: start: 20030301, end: 20080301

REACTIONS (55)
  - FEMUR FRACTURE [None]
  - FALL [None]
  - PYELONEPHRITIS ACUTE [None]
  - PAIN IN EXTREMITY [None]
  - ROTATOR CUFF SYNDROME [None]
  - JOINT DISLOCATION [None]
  - INCREASED TENDENCY TO BRUISE [None]
  - HYPERCHOLESTEROLAEMIA [None]
  - HAEMORRHOIDS [None]
  - EPIDURAL LIPOMATOSIS [None]
  - LOW TURNOVER OSTEOPATHY [None]
  - URINARY TRACT INFECTION [None]
  - IRON DEFICIENCY ANAEMIA [None]
  - ATAXIA [None]
  - DIARRHOEA [None]
  - ORAL CANDIDIASIS [None]
  - INSOMNIA [None]
  - OSTEOARTHRITIS [None]
  - ARTHRALGIA [None]
  - BURSITIS [None]
  - SPINAL COLUMN STENOSIS [None]
  - RASH [None]
  - RETINAL DETACHMENT [None]
  - CATARACT [None]
  - HAEMORRHAGIC ANAEMIA [None]
  - ADVERSE EVENT [None]
  - CAROTID ARTERY STENOSIS [None]
  - PYELONEPHRITIS CHRONIC [None]
  - LUMBAR RADICULOPATHY [None]
  - TOOTH DISORDER [None]
  - UPPER-AIRWAY COUGH SYNDROME [None]
  - HELICOBACTER GASTRITIS [None]
  - SCOLIOSIS [None]
  - NEPHROLITHIASIS [None]
  - MENISCUS LESION [None]
  - INTERMITTENT CLAUDICATION [None]
  - CORONARY ARTERY DISEASE [None]
  - CARDIAC MURMUR [None]
  - OEDEMA PERIPHERAL [None]
  - HYPERSENSITIVITY [None]
  - HOUSE DUST ALLERGY [None]
  - TEMPERATURE INTOLERANCE [None]
  - ARTHROPATHY [None]
  - AZOTAEMIA [None]
  - SYNOVIAL CYST [None]
  - POST-TRAUMATIC NECK SYNDROME [None]
  - RADICULOPATHY [None]
  - VOMITING [None]
  - HEAD INJURY [None]
  - GASTROOESOPHAGEAL REFLUX DISEASE [None]
  - PRURITUS [None]
  - NEPHROPATHY [None]
  - IRRITABLE BOWEL SYNDROME [None]
  - RENAL FAILURE CHRONIC [None]
  - BRONCHITIS CHRONIC [None]
